FAERS Safety Report 9379535 (Version 1)
Quarter: 2013Q2

REPORT INFORMATION
  Report Type: Spontaneous
  Country: US (occurrence: None)
  Receive Date: 20130627
  Receipt Date: 20130627
  Transmission Date: 20140414
  Serious: Yes (Death)
  Sender: FDA-Public Use
  Company Number: FK201302161

PATIENT
  Age: 64 Year
  Sex: Male

DRUGS (1)
  1. MORPHINE (MORPHINE) (UNKNOWN) (MORPHINE) [Suspect]
     Indication: PRODUCT USED FOR UNKNOWN INDICATION
     Route: 048

REACTIONS (5)
  - Intentional overdose [None]
  - Renal failure acute [None]
  - Myoclonus [None]
  - Cardiac arrest [None]
  - Completed suicide [None]
